FAERS Safety Report 11518485 (Version 1)
Quarter: 2015Q3

REPORT INFORMATION
  Report Type: Spontaneous
  Country: EG (occurrence: EG)
  Receive Date: 20150917
  Receipt Date: 20150917
  Transmission Date: 20151125
  Serious: Yes (Other)
  Sender: FDA-Public Use
  Company Number: EG-ABBVIE-15P-048-1464323-00

PATIENT
  Sex: Male

DRUGS (1)
  1. DEPAKINE CHRONO [Suspect]
     Active Substance: VALPROATE SODIUM
     Indication: JUVENILE MYOCLONIC EPILEPSY
     Route: 065
     Dates: start: 1998

REACTIONS (3)
  - Medication residue present [Unknown]
  - Drug level decreased [Unknown]
  - Generalised tonic-clonic seizure [Not Recovered/Not Resolved]
